FAERS Safety Report 13406976 (Version 1)
Quarter: 2017Q2

REPORT INFORMATION
  Report Type: Spontaneous
  Country: US (occurrence: US)
  Receive Date: 20170405
  Receipt Date: 20170405
  Transmission Date: 20170830
  Serious: No
  Sender: FDA-Public Use
  Company Number: US-EAGLE PHARMACEUTICALS, INC.-US-2017EAG000004

PATIENT

DRUGS (2)
  1. BENDEKA [Suspect]
     Active Substance: BENDAMUSTINE HYDROCHLORIDE
     Indication: B-CELL LYMPHOMA
     Dosage: 167 MG, UNK CYCLE, (DAYS 1 AND 2) DILUTED IN 50 ML AND 80 ML NORMAL SALINE (NS), RESPECTIVELY
     Route: 042
     Dates: start: 20170105
  2. RITUXIMAB [Concomitant]
     Active Substance: RITUXIMAB
     Indication: B-CELL LYMPHOMA
     Dosage: 375 MG/M2, UNK (DAY 1)

REACTIONS (1)
  - Infusion site pain [Recovering/Resolving]

NARRATIVE: CASE EVENT DATE: 20170105
